FAERS Safety Report 9349805 (Version 1)
Quarter: 2013Q2

REPORT INFORMATION
  Report Type: Spontaneous
  Country: BR (occurrence: None)
  Receive Date: 20130611
  Receipt Date: 20130611
  Transmission Date: 20140414
  Serious: Yes (Death)
  Sender: FDA-Public Use
  Company Number: DSJ-2013-12675

PATIENT
  Age: 71 Year
  Sex: Female

DRUGS (4)
  1. BENICAR (OLMESARTAN MEDOXOMIL) (TABLET) (OLMESARTAN MEDOXOMIL) [Suspect]
     Indication: HYPERTENSION
     Route: 048
     Dates: start: 2011, end: 20130405
  2. LEVOTHYROXINE SODIUM (LEVOTHYROXINE SODIUM ( [Concomitant]
  3. FUROSEMIDE [Concomitant]
  4. DABIGATRAN (DABIGATRAN) (DABIGATRAN) [Concomitant]

REACTIONS (1)
  - Myocardial infarction [None]
